FAERS Safety Report 7594648-3 (Version None)
Quarter: 2011Q2

REPORT INFORMATION
  Report Type: 
  Country: None (occurrence: None)
  Receive Date: 20110609
  Receipt Date: 20110505
  Transmission Date: 20111010
  Serious: No
  Sender: FDA-Public Use
  Company Number: TH-2011-00122

PATIENT
  Age: 45 Year
  Sex: Male

DRUGS (2)
  1. EGRIFTA [Suspect]
     Dosage: 1 IN 1 D
     Dates: start: 20110421, end: 20110423
  2. METFORMIN HCL [Concomitant]

REACTIONS (3)
  - HYPERHIDROSIS [None]
  - PAIN [None]
  - BLOOD GLUCOSE INCREASED [None]
